FAERS Safety Report 4900509-8 (Version None)
Quarter: 2006Q1

REPORT INFORMATION
  Report Type: 
  Country: None (occurrence: None)
  Receive Date: 20060203
  Receipt Date: 20050930
  Transmission Date: 20060701
  Serious: Yes (Hospitalization)
  Sender: FDA-Public Use
  Company Number: US-MERCK-0510USA01296

PATIENT
  Age: 54 Year
  Sex: Male
  Weight: 105 kg

DRUGS (1)
  1. VIOXX [Suspect]
     Indication: ARTHRITIS
     Route: 048
     Dates: start: 20000101, end: 20050101

REACTIONS (11)
  - ANGINA PECTORIS [None]
  - BRAIN STEM INFARCTION [None]
  - CAROTID ARTERY DISEASE [None]
  - CHEST PAIN [None]
  - HYPERCHOLESTEROLAEMIA [None]
  - HYPOAESTHESIA [None]
  - INGUINAL HERNIA [None]
  - JOINT INJURY [None]
  - ROAD TRAFFIC ACCIDENT [None]
  - VISION BLURRED [None]
  - WRIST FRACTURE [None]
